FAERS Safety Report 5885771-X (Version None)
Quarter: 2008Q3

REPORT INFORMATION
  Report Type: 
  Country: None (occurrence: None)
  Receive Date: 20080916
  Receipt Date: 20080905
  Transmission Date: 20090109
  Serious: Yes (Life-Threatening, Hospitalization)
  Sender: FDA-Public Use
  Company Number: US-ELI_LILLY_AND_COMPANY-US200809001773

PATIENT
  Sex: Male
  Weight: 89.796 kg

DRUGS (16)
  1. BYETTA [Suspect]
     Indication: TYPE 2 DIABETES MELLITUS
     Dosage: 5 UG, 2/D
     Route: 058
     Dates: start: 20080601, end: 20080701
  2. BYETTA [Suspect]
     Dosage: 10 UG, 2/D
     Route: 058
     Dates: start: 20080809, end: 20080830
  3. IPRAVENT [Concomitant]
     Dosage: UNK, UNKNOWN
  4. ALBUTEROL [Concomitant]
     Dosage: UNK, UNKNOWN
  5. LISINOPRIL AND HYDROCHLOROTHIAZIDE [Concomitant]
     Dosage: UNK, DAILY (1/D)
  6. AMLODIPINE BESYLATE [Concomitant]
     Dosage: 10 MG, DAILY (1/D)
  7. OMEPRAZOLE [Concomitant]
     Dosage: 20 MG, DAILY (1/D)
  8. GEMFIBROZIL [Concomitant]
     Dosage: 600 MG, 2/D
  9. CARDIZEM CD [Concomitant]
     Dosage: 360 MG, DAILY (1/D)
  10. DIGOXIN [Concomitant]
     Dosage: 0.125 MG, DAILY (1/D)
  11. FLUOXETINE [Concomitant]
     Dosage: 20 MG, DAILY (1/D)
  12. METFORMIN [Concomitant]
     Dosage: 1000 MG, 2/D
  13. POTASSIUM CHLORIDE [Concomitant]
     Dosage: 10 MG, UNKNOWN
  14. WARFARIN SODIUM [Concomitant]
     Dosage: 6 MG, EACH EVENING
  15. SIMVASTATIN [Concomitant]
     Dosage: 10 MG, EACH EVENING
  16. GLIMEPIRIDE [Concomitant]
     Dosage: 4 MG, DAILY (1/D)

REACTIONS (7)
  - BLOOD GLUCOSE DECREASED [None]
  - DYSPNOEA [None]
  - FEELING HOT [None]
  - HYPERHIDROSIS [None]
  - NAUSEA [None]
  - NERVOUSNESS [None]
  - TREMOR [None]
